FAERS Safety Report 21852948 (Version 1)
Quarter: 2023Q1

REPORT INFORMATION
  Report Type: Spontaneous
  Country: IT (occurrence: IT)
  Receive Date: 20230112
  Receipt Date: 20230112
  Transmission Date: 20230418
  Serious: Yes (Hospitalization, Other)
  Sender: FDA-Public Use
  Company Number: IT-MINISAL02-902529

PATIENT
  Age: 83 Year
  Sex: Female

DRUGS (6)
  1. QUETIAPINE [Suspect]
     Active Substance: QUETIAPINE
     Indication: Senile dementia
     Dosage: 25 MILLIGRAM
     Route: 048
  2. PAROXETINE [Suspect]
     Active Substance: PAROXETINE
     Indication: Senile dementia
     Dosage: 20 MILLIGRAM
     Route: 048
  3. HALCION [Suspect]
     Active Substance: TRIAZOLAM
     Indication: Senile dementia
     Dosage: 250 MICROGRAM
     Route: 048
  4. ASPIRIN [Concomitant]
     Active Substance: ASPIRIN
     Indication: Product used for unknown indication
     Dosage: UNK
     Route: 065
  5. PANTOPRAZOLE SODIUM [Concomitant]
     Active Substance: PANTOPRAZOLE SODIUM
     Indication: Product used for unknown indication
     Dosage: UNK
     Route: 065
  6. RAMIPRIL [Concomitant]
     Active Substance: RAMIPRIL
     Indication: Product used for unknown indication
     Dosage: UNK
     Route: 065

REACTIONS (2)
  - Loss of consciousness [Recovering/Resolving]
  - Hyporesponsive to stimuli [Recovering/Resolving]

NARRATIVE: CASE EVENT DATE: 20221111
